FAERS Safety Report 9953523 (Version 2)
Quarter: 2014Q1

REPORT INFORMATION
  Report Type: Spontaneous
  Country: JP (occurrence: JP)
  Receive Date: 20140304
  Receipt Date: 20140304
  Transmission Date: 20141002
  Serious: Yes (Other)
  Sender: FDA-Public Use
  Company Number: JP-PFIZER INC-2014029867

PATIENT
  Age: 67 Year
  Sex: Male
  Weight: 80.8 kg

DRUGS (20)
  1. LYRICA [Suspect]
     Indication: ANALGESIC THERAPY
     Dosage: 50 MG, 1X/DAY, BEFORE BEDTIME
     Route: 048
     Dates: start: 20131118, end: 20131202
  2. LYRICA [Suspect]
     Dosage: 75 MG, DAILY (25 MG AFTER BREAKFAST AND 50 MG BEFORE BEDTIME)
     Route: 048
     Dates: start: 20131203, end: 20140130
  3. BAYASPIRIN [Concomitant]
     Dosage: UNK
     Route: 048
  4. ONE-ALPHA [Concomitant]
     Route: 048
  5. FEBURIC [Concomitant]
     Route: 048
  6. DIOVAN [Concomitant]
     Route: 048
  7. AMLODIN [Concomitant]
     Route: 048
  8. PRECIPITATED CALCIUM CARBONATE [Concomitant]
     Route: 048
  9. FOSRENOL [Concomitant]
     Route: 048
  10. ASPENON [Concomitant]
     Dosage: 10 MG, 3X/DAY, AFTER MEALS
     Route: 048
  11. WARFARIN [Concomitant]
     Dosage: 2.5 MG, 1X/DAY, AFTER DINNER
     Route: 048
     Dates: start: 20130411
  12. REZALTAS [Concomitant]
     Dosage: 1 DF, 1X/DAY, AFTER DINNER
     Route: 048
     Dates: start: 20130411
  13. TAKEPRON OD [Concomitant]
     Dosage: 30 MG, 1X/DAY, AFTER DINNER
     Route: 048
     Dates: start: 20130411
  14. SHAKUYAKU-KANZO-TO [Concomitant]
     Dosage: 2.5 G, 2X/DAY, BEFORE BREAKFAST AND DINNER
     Route: 048
     Dates: start: 201312, end: 201312
  15. LIPLE [Concomitant]
     Route: 042
  16. EPOETIN ALFA [Concomitant]
     Route: 042
  17. L-CARTIN [Concomitant]
     Route: 042
  18. FESIN [Concomitant]
     Route: 042
  19. MOHRUS TAPE [Concomitant]
     Route: 062
  20. ARGAMATE [Concomitant]
     Dosage: 50 G, 3X/DAY, AFTER MEALS
     Route: 048
     Dates: start: 201401

REACTIONS (2)
  - Somnambulism [Recovered/Resolved]
  - Sleep talking [Unknown]
